FAERS Safety Report 6762216-9 (Version None)
Quarter: 2010Q2

REPORT INFORMATION
  Report Type: 
  Country: None (occurrence: None)
  Receive Date: 20100609
  Receipt Date: 20100526
  Transmission Date: 20101027
  Serious: Yes (Other)
  Sender: FDA-Public Use
  Company Number: PHHY2010US34454

PATIENT
  Sex: Female

DRUGS (2)
  1. DIOVAN HCT [Suspect]
     Dosage: 160/25 MG
     Route: 048
     Dates: start: 20100512
  2. DIOVAN [Suspect]

REACTIONS (6)
  - COUGH [None]
  - FLUID RETENTION [None]
  - HYPERTENSION [None]
  - PAIN [None]
  - SINUS DISORDER [None]
  - SYSTEMIC LUPUS ERYTHEMATOSUS [None]
